FAERS Safety Report 24732665 (Version 1)
Quarter: 2024Q4

REPORT INFORMATION
  Report Type: Spontaneous
  Country: IT (occurrence: IT)
  Receive Date: 20241213
  Receipt Date: 20241213
  Transmission Date: 20250114
  Serious: Yes (Hospitalization, Other)
  Sender: BRISTOL-MYERS SQUIBB COMPANY
  Company Number: IT-AUROBINDO-AUR-APL-2024-058208

PATIENT
  Age: 86 Year
  Sex: Female

DRUGS (4)
  1. APIXABAN [Interacting]
     Active Substance: APIXABAN
     Indication: Superficial vein thrombosis
     Dosage: 2.5 MILLIGRAM, TWO TIMES A DAY
  2. DABIGATRAN [Interacting]
     Active Substance: DABIGATRAN
     Indication: Product used for unknown indication
     Dosage: UNK
  3. AMOXICILLIN\CLAVULANIC ACID [Concomitant]
     Active Substance: AMOXICILLIN\CLAVULANIC ACID
     Indication: Infection
     Dosage: 1 GRAM
  4. POLYETHYLENE GLYCOLS [Concomitant]
     Active Substance: POLYETHYLENE GLYCOLS
     Indication: Enema administration
     Dosage: 150 GRAM

REACTIONS (5)
  - Coagulopathy [Recovering/Resolving]
  - Haematoma [Unknown]
  - Haemoglobin decreased [Unknown]
  - Drug interaction [Unknown]
  - Off label use [Unknown]
